FAERS Safety Report 7234712-1 (Version None)
Quarter: 2011Q1

REPORT INFORMATION
  Report Type: 
  Country: None (occurrence: None)
  Receive Date: 20110120
  Receipt Date: 20110112
  Transmission Date: 20110831
  Serious: No
  Sender: FDA-Public Use
  Company Number: US-BIOGENIDEC-2011BI001479

PATIENT
  Age: 46 Year
  Sex: Male

DRUGS (1)
  1. AVONEX [Suspect]
     Indication: MULTIPLE SCLEROSIS
     Route: 030
     Dates: start: 20100101

REACTIONS (6)
  - IRRITABILITY [None]
  - DIZZINESS [None]
  - PSYCHIATRIC SYMPTOM [None]
  - NAUSEA [None]
  - HALLUCINATION [None]
  - SPEECH DISORDER [None]
